FAERS Safety Report 4280009-1 (Version None)
Quarter: 2004Q1

REPORT INFORMATION
  Report Type: 
  Country: None (occurrence: None)
  Receive Date: 20040126
  Receipt Date: 20040116
  Transmission Date: 20041129
  Serious: Yes (Life-Threatening, Hospitalization)
  Sender: FDA-Public Use
  Company Number: FI-SHR-03-018389

PATIENT
  Age: 48 Year
  Sex: Female

DRUGS (5)
  1. MIRENA [Suspect]
     Indication: MENORRHAGIA
     Dosage: 20 UG, CONT, INTRA-UTERINE
     Route: 015
     Dates: start: 20011001, end: 20031001
  2. SOTACOR [Concomitant]
  3. ISMOX [Concomitant]
  4. LOSEC [Concomitant]
  5. SERUMLIPIDREDUCING AGENTS [Concomitant]

REACTIONS (4)
  - ENDOMETRIAL CANCER STAGE I [None]
  - OVARIAN CANCER [None]
  - POST PROCEDURAL NAUSEA [None]
  - UTERINE CANCER [None]
